FAERS Safety Report 20354667 (Version 3)
Quarter: 2022Q1

REPORT INFORMATION
  Report Type: Report from Study
  Country: PA (occurrence: PA)
  Receive Date: 20220120
  Receipt Date: 20220321
  Transmission Date: 20220423
  Serious: Yes (Other)
  Sender: FDA-Public Use
  Company Number: PA-NOVARTISPH-NVSC2022PA010394

PATIENT
  Sex: Female

DRUGS (3)
  1. KISQALI [Suspect]
     Active Substance: RIBOCICLIB
     Indication: Breast cancer metastatic
     Dosage: 600 MG, QD
     Route: 048
     Dates: start: 2018
  2. KISQALI [Suspect]
     Active Substance: RIBOCICLIB
     Dosage: 600 MG, QD (3 TABLETS)
     Route: 048
     Dates: start: 201910
  3. ANASTROZOLE [Suspect]
     Active Substance: ANASTROZOLE
     Indication: Breast cancer metastatic
     Dosage: 1 DOSAGE FORM (1 TABLET)
     Route: 065

REACTIONS (6)
  - Metastases to bone [Unknown]
  - Metastases to neck [Unknown]
  - Abdominal pain upper [Recovered/Resolved]
  - Gastritis [Recovered/Resolved]
  - Abdominal distension [Recovered/Resolved]
  - Product dose omission issue [Unknown]
